FAERS Safety Report 5758582-3 (Version None)
Quarter: 2008Q2

REPORT INFORMATION
  Report Type: 
  Country: None (occurrence: None)
  Receive Date: 20080604
  Receipt Date: 20080527
  Transmission Date: 20081010
  Serious: Yes (Hospitalization)
  Sender: FDA-Public Use
  Company Number: B0514960A

PATIENT
  Age: 1 Day
  Sex: Female

DRUGS (1)
  1. PAROXETINE HCL [Suspect]
     Indication: DRUG USE FOR UNKNOWN INDICATION
     Dosage: 20MG PER DAY
     Dates: end: 20080212

REACTIONS (4)
  - CYANOSIS [None]
  - DRUG EXPOSURE DURING PREGNANCY [None]
  - MALAISE [None]
  - TREMOR [None]
